FAERS Safety Report 18040318 (Version 1)
Quarter: 2020Q3

REPORT INFORMATION
  Report Type: Spontaneous
  Country: CH (occurrence: CH)
  Receive Date: 20200717
  Receipt Date: 20200717
  Transmission Date: 20201103
  Serious: Yes (Life-Threatening, Hospitalization, Other)
  Sender: FDA-Public Use
  Company Number: CH-009507513-2007CHE004871

PATIENT
  Age: 52 Year
  Sex: Male

DRUGS (29)
  1. CALCIPARINE [Suspect]
     Active Substance: HEPARIN CALCIUM
     Dosage: 5000 INTERNATIONAL UNIT, SUBCUTANEOUS
     Route: 058
     Dates: start: 20200530, end: 20200603
  2. ACETAMINOPHEN. [Concomitant]
     Active Substance: ACETAMINOPHEN
     Dosage: VARIABLE DOSE OF 0.5?4 G DAILY FROM 05?MAY?2020 ? 29?MAY?2020
     Dates: start: 20200505, end: 20200529
  3. KONAKION [Concomitant]
     Active Substance: PHYTONADIONE
     Dosage: VARIABLE DOSE AS PER INR, ADMINISTERED ON 07?MAY?2020, 13?MAY?2020, 16?MAY?2020 TO 19?MAY?2020, BOTH
     Dates: start: 20200516, end: 20200519
  4. CIPROFLOXACIN. [Concomitant]
     Active Substance: CIPROFLOXACIN
     Dosage: INTRAVENOUSLY
     Route: 042
     Dates: start: 20200519
  5. METRONIDAZOLE. [Suspect]
     Active Substance: METRONIDAZOLE
     Dosage: ORALLY
     Route: 048
     Dates: start: 20200515, end: 20200519
  6. METRONIDAZOLE. [Suspect]
     Active Substance: METRONIDAZOLE
     Dosage: INTRAVENOUSLY
     Route: 042
     Dates: start: 20200525, end: 20200529
  7. MEROPENEM. [Suspect]
     Active Substance: MEROPENEM
     Dosage: 1?2G DAILY, INTRAVENOUS
     Route: 042
     Dates: start: 20200523, end: 20200604
  8. CEFEPIME [Concomitant]
     Active Substance: CEFEPIME HYDROCHLORIDE
     Dosage: 1000 MILLIGRAM, QD
     Dates: start: 20200515, end: 20200519
  9. LORAZEPAM. [Concomitant]
     Active Substance: LORAZEPAM
     Dosage: RESERVE MEDICATION 1 MG, MAXIMUM 1 MG DAILY
  10. VALTREX [Suspect]
     Active Substance: VALACYCLOVIR HYDROCHLORIDE
     Dosage: 500 MILLIGRAM, Q12H
     Dates: start: 20200508, end: 20200519
  11. MORPHINE SULFATE. [Suspect]
     Active Substance: MORPHINE SULFATE
     Dosage: VARIABLE DOSE, 0?20 MG IN RESERVE DAILY, AS WELL AS VARIABLE FIXED MEDICATION, A MAXIMUM OF
     Dates: start: 20200505, end: 20200526
  12. PREDNISOLON [Concomitant]
     Active Substance: PREDNISOLONE
     Dosage: 125 MILLIGRAM, QD
     Dates: start: 20200508, end: 20200514
  13. ZAVEDOS [Suspect]
     Active Substance: IDARUBICIN
     Dosage: 22.5 MILLIGRAM, QD
     Dates: start: 20200508, end: 20200514
  14. RYDAPT [Suspect]
     Active Substance: MIDOSTAURIN
     Dosage: 50 MILLIGRAM, QD
     Dates: start: 20200515, end: 20200519
  15. LITALIR [Suspect]
     Active Substance: HYDROXYUREA
     Dosage: 2000 MILLIGRAM, QD
     Dates: start: 20200504, end: 20200507
  16. ONDANSETRON [Concomitant]
     Active Substance: ONDANSETRON
     Dosage: TAKEN VARIABLY ORALLY FROM 08?MAY?2020 ? 19?MAY?2020 AS 4 MG TABLETS
     Route: 048
     Dates: start: 20200508, end: 20200519
  17. DIPYRONE [Concomitant]
     Active Substance: DIPYRONE
     Dosage: 500 MILLIGRAM, Q4H
     Dates: start: 20200515, end: 20200606
  18. CUBICIN [Suspect]
     Active Substance: DAPTOMYCIN
     Dosage: INTRAVENOUSLY
     Route: 042
     Dates: start: 20200523, end: 20200603
  19. KONAKION [Concomitant]
     Active Substance: PHYTONADIONE
     Dosage: VARIABLE DOSE AS PER INR, ADMINISTERED ON 07?MAY?2020, 13?MAY?2020, 16?MAY?2020 TO 19?MAY?2020, BOTH
     Dates: start: 20200507, end: 20200507
  20. METOCLOPRAMIDE. [Concomitant]
     Active Substance: METOCLOPRAMIDE
     Dosage: 10 MILLIGRAM, Q8H
     Dates: start: 20200520, end: 20200520
  21. NEXIUM I.V. [Suspect]
     Active Substance: ESOMEPRAZOLE SODIUM
     Dosage: VARIABLE DOSE OF 40?80 MG ADMINISTERED BOTH ORALLY AS WELL AS INTRAVENOUSLY
     Dates: start: 20200504, end: 20200606
  22. MIDAZOLAM. [Concomitant]
     Active Substance: MIDAZOLAM
     Dosage: RESERVE 0.5 MG UP TO A MAXIMUM OF 3 G PER DAY
     Dates: start: 20200505, end: 20200606
  23. CYTOSAR [Suspect]
     Active Substance: CYTARABINE
     Dosage: 370 MILLIGRAM, QD
     Dates: start: 20200508, end: 20200514
  24. NALOXONE (NALOXONE HYDROCHLORIDE) [Concomitant]
     Active Substance: NALOXONE HYDROCHLORIDE
     Dosage: 0.4 MG UP TO IMPROVEMENT OF SYMPTOMS
     Dates: start: 20200521, end: 20200603
  25. NOXAFIL [Suspect]
     Active Substance: POSACONAZOLE
     Dosage: 300 MILLIGRAM, QD
     Dates: start: 20200508, end: 20200604
  26. ZOVIRAX [Suspect]
     Active Substance: ACYCLOVIR
     Dosage: 200 MILLIGRAM, Q12H
     Dates: start: 20200520, end: 20200611
  27. KONAKION [Concomitant]
     Active Substance: PHYTONADIONE
     Dosage: VARIABLE DOSE AS PER INR, ADMINISTERED ON 07?MAY?2020, 13?MAY?2020, 16?MAY?2020 TO 19?MAY?2020, BOTH
     Dates: start: 20200513, end: 20200513
  28. PIPERACILLIN SODIUM (+) TAZOBACTAM [Concomitant]
     Dosage: VARIABLE DOSE ADAPTED TO RENAL FUNCTION FROM 2.25 MG THRICE DAILY UP TO A TOTAL OF 9 MG DAILY
     Dates: start: 20200519, end: 20200523
  29. KETAMINE [Concomitant]
     Active Substance: KETAMINE
     Dosage: INTRAVENOUSLY
     Route: 042
     Dates: start: 20200603, end: 20200606

REACTIONS (6)
  - Pancytopenia [Recovering/Resolving]
  - Febrile neutropenia [Recovered/Resolved]
  - Intestinal haemorrhage [Recovered/Resolved]
  - Neutropenic colitis [Recovered/Resolved]
  - Drug-induced liver injury [Recovering/Resolving]
  - Overdose [Recovered/Resolved]

NARRATIVE: CASE EVENT DATE: 20200514
